FAERS Safety Report 14837908 (Version 2)
Quarter: 2018Q3

REPORT INFORMATION
  Report Type: Spontaneous
  Country: GB (occurrence: GB)
  Receive Date: 20180502
  Receipt Date: 20180730
  Transmission Date: 20181010
  Serious: Yes (Other)
  Sender: FDA-Public Use
  Company Number: GB-PFIZER INC-2018169261

PATIENT
  Age: 64 Year
  Sex: Male
  Weight: 53.97 kg

DRUGS (3)
  1. FLUCLOXACILLIN [Concomitant]
     Active Substance: FLUCLOXACILLIN
     Dosage: 500 MG, UNK
  2. PARACETAMOL [Concomitant]
     Active Substance: ACETAMINOPHEN
  3. FRAGMIN [Suspect]
     Active Substance: DALTEPARIN SODIUM
     Indication: THROMBOSIS
     Dosage: 5000 IU/0.2ML PER DAY, 1X/DAY
     Route: 051
     Dates: start: 20180111, end: 20180207

REACTIONS (1)
  - Heart rate increased [Recovered/Resolved]

NARRATIVE: CASE EVENT DATE: 20180111
